FAERS Safety Report 8044751-9 (Version None)
Quarter: 2012Q1

REPORT INFORMATION
  Report Type: 
  Country: None (occurrence: None)
  Receive Date: 20120113
  Receipt Date: 20120110
  Transmission Date: 20120608
  Serious: Yes (Life-Threatening, Hospitalization, Other)
  Sender: FDA-Public Use
  Company Number: NO-ELI_LILLY_AND_COMPANY-NO201108007250

PATIENT
  Age: 25 Year
  Sex: Female

DRUGS (4)
  1. CIRCADIN [Concomitant]
     Dosage: UNK
  2. VALPROATE SODIUM [Concomitant]
     Dosage: 900 MG, QD
     Dates: start: 20110101
  3. FLUOXETINE HCL [Suspect]
     Dosage: UNK
  4. LAMICTAL [Concomitant]
     Dosage: UNK
     Dates: start: 20110101

REACTIONS (1)
  - RESPIRATORY FAILURE [None]
